FAERS Safety Report 4472649-1 (Version None)
Quarter: 2004Q4

REPORT INFORMATION
  Report Type: 
  Country: None (occurrence: None)
  Receive Date: 20041008
  Receipt Date: 20040916
  Transmission Date: 20050328
  Serious: Yes (Hospitalization)
  Sender: FDA-Public Use
  Company Number: FR_040904790

PATIENT
  Sex: Male

DRUGS (4)
  1. PROZAC [Suspect]
     Dates: end: 20030101
  2. MEPRONIZINE [Concomitant]
  3. VALPROATE SODIUM [Concomitant]
  4. TERCIAN (CYAMENAZINE) [Concomitant]

REACTIONS (10)
  - APGAR SCORE LOW [None]
  - DRUG EXPOSURE DURING PREGNANCY [None]
  - FOETAL GROWTH RETARDATION [None]
  - HEART DISEASE CONGENITAL [None]
  - HYPERTONIA NEONATAL [None]
  - HYPOTONIA NEONATAL [None]
  - IRRITABILITY [None]
  - NEONATAL APNOEIC ATTACK [None]
  - OLIGOHYDRAMNIOS [None]
  - TRICUSPID VALVE INCOMPETENCE [None]
